FAERS Safety Report 4766056-1 (Version None)
Quarter: 2005Q3

REPORT INFORMATION
  Report Type: 
  Country: None (occurrence: None)
  Receive Date: 20050912
  Receipt Date: 20050829
  Transmission Date: 20060218
  Serious: Yes (Hospitalization)
  Sender: FDA-Public Use
  Company Number: DE-GLAXOSMITHKLINE-D0047398A

PATIENT
  Age: 68 Year
  Sex: Female
  Weight: 70 kg

DRUGS (2)
  1. QUILONUM RETARD [Suspect]
     Dosage: 1.5TAB PER DAY
     Route: 048
     Dates: start: 19960101
  2. REMIFEMIN PLUS [Concomitant]
     Route: 048
     Dates: start: 20040101

REACTIONS (18)
  - BORRELIA INFECTION [None]
  - BREAST CANCER FEMALE [None]
  - CHLAMYDIAL INFECTION [None]
  - DIFFICULTY IN WALKING [None]
  - HYPERTENSION [None]
  - HYPOTHYROIDISM [None]
  - INTERVERTEBRAL DISC PROTRUSION [None]
  - LUMBAR SPINE FLATTENING [None]
  - MOBILITY DECREASED [None]
  - MUSCLE TIGHTNESS [None]
  - OSTEOARTHRITIS [None]
  - OSTEOCHONDROSIS [None]
  - PSORIATIC ARTHROPATHY [None]
  - SACROILIITIS [None]
  - SCIATICA [None]
  - SPINAL DEFORMITY [None]
  - SPINAL OSTEOARTHRITIS [None]
  - SPONDYLOLISTHESIS [None]
